FAERS Safety Report 5519647-4 (Version None)
Quarter: 2007Q4

REPORT INFORMATION
  Report Type: 
  Country: None (occurrence: None)
  Receive Date: 20071114
  Receipt Date: 20071107
  Transmission Date: 20080405
  Serious: Yes (Hospitalization)
  Sender: FDA-Public Use
  Company Number: 2007SP022578

PATIENT
  Age: 44 Year
  Sex: Male

DRUGS (21)
  1. TEMOZOLOMIDE [Suspect]
     Indication: GLIOBLASTOMA MULTIFORME
     Dosage: 50 MG/M2;QD;PO ; 50 MG/M2;QD;PO
     Route: 048
     Dates: start: 20070910, end: 20071013
  2. TEMOZOLOMIDE [Suspect]
     Indication: GLIOBLASTOMA MULTIFORME
     Dosage: 50 MG/M2;QD;PO ; 50 MG/M2;QD;PO
     Route: 048
     Dates: start: 20071029, end: 20071103
  3. BEVACIZUMAB [Suspect]
     Dosage: 1230 MG;QOW;IV ; 1230 MG;QOW;IV ; 1230 MG;QOW;IV ; 1230 MG;QOW;IV
     Route: 042
     Dates: start: 20070910, end: 20070910
  4. BEVACIZUMAB [Suspect]
     Dosage: 1230 MG;QOW;IV ; 1230 MG;QOW;IV ; 1230 MG;QOW;IV ; 1230 MG;QOW;IV
     Route: 042
     Dates: start: 20070924, end: 20070924
  5. BEVACIZUMAB [Suspect]
     Dosage: 1230 MG;QOW;IV ; 1230 MG;QOW;IV ; 1230 MG;QOW;IV ; 1230 MG;QOW;IV
     Route: 042
     Dates: start: 20071008, end: 20071008
  6. BEVACIZUMAB [Suspect]
     Dosage: 1230 MG;QOW;IV ; 1230 MG;QOW;IV ; 1230 MG;QOW;IV ; 1230 MG;QOW;IV
     Route: 042
     Dates: start: 20071030, end: 20071030
  7. HYDROCHLOROTHIAZIDE [Concomitant]
  8. NEXIUM [Concomitant]
  9. XANAX [Concomitant]
  10. FLEXERIL [Concomitant]
  11. DECADRON [Concomitant]
  12. DIFLUCAN [Concomitant]
  13. LEXAPRO [Concomitant]
  14. AMBIEN [Concomitant]
  15. VIOKASE [Concomitant]
  16. BACLOFEN [Concomitant]
  17. COLACE [Concomitant]
  18. LANTUS [Concomitant]
  19. PROTONIX [Concomitant]
  20. ACTIGALL [Concomitant]
  21. MIRALAX [Concomitant]

REACTIONS (6)
  - BLOOD PRESSURE INCREASED [None]
  - CHOLELITHIASIS [None]
  - GLIOBLASTOMA MULTIFORME [None]
  - HYPERGLYCAEMIA [None]
  - MALIGNANT NEOPLASM PROGRESSION [None]
  - PANCREATITIS ACUTE [None]
